FAERS Safety Report 16565679 (Version 6)
Quarter: 2021Q2

REPORT INFORMATION
  Report Type: Spontaneous
  Country: US (occurrence: US)
  Receive Date: 20190712
  Receipt Date: 20210401
  Transmission Date: 20210716
  Serious: No
  Sender: FDA-Public Use
  Company Number: US-PFIZER INC-2019296335

PATIENT
  Age: 71 Year
  Sex: Male
  Weight: 107.03 kg

DRUGS (1)
  1. XELJANZ [Suspect]
     Active Substance: TOFACITINIB CITRATE
     Dosage: 5 MG
     Dates: start: 2019

REACTIONS (5)
  - Reading disorder [Unknown]
  - Amnesia [Unknown]
  - Stress [Unknown]
  - Rhinorrhoea [Not Recovered/Not Resolved]
  - Peripheral swelling [Unknown]
